FAERS Safety Report 15121438 (Version 3)
Quarter: 2018Q3

REPORT INFORMATION
  Report Type: Spontaneous
  Country: US (occurrence: US)
  Receive Date: 20180709
  Receipt Date: 20180730
  Transmission Date: 20181010
  Serious: No
  Sender: FDA-Public Use
  Company Number: US-CELGENEUS-USA-20180701652

PATIENT
  Age: 53 Year
  Sex: Female

DRUGS (11)
  1. CALTRATE [Concomitant]
     Active Substance: CALCIUM CARBONATE
     Indication: PRODUCT USED FOR UNKNOWN INDICATION
     Route: 048
     Dates: start: 20171010
  2. VITAMIN D3 [Concomitant]
     Active Substance: CHOLECALCIFEROL
     Indication: PRODUCT USED FOR UNKNOWN INDICATION
     Route: 048
     Dates: start: 20171113
  3. ALPRAZOLAM ER [Concomitant]
     Active Substance: ALPRAZOLAM
     Indication: PRODUCT USED FOR UNKNOWN INDICATION
     Route: 048
     Dates: start: 20170612
  4. BUTALBITAL [Concomitant]
     Active Substance: BUTALBITAL
     Indication: PRODUCT USED FOR UNKNOWN INDICATION
     Route: 065
     Dates: start: 20170612
  5. FLONASE ALGY [Concomitant]
     Indication: PRODUCT USED FOR UNKNOWN INDICATION
     Route: 065
     Dates: start: 20170612
  6. MINIVELLE DIS [Concomitant]
     Indication: PRODUCT USED FOR UNKNOWN INDICATION
     Route: 048
     Dates: start: 20180703
  7. CLARITIN [Concomitant]
     Active Substance: LORATADINE
     Indication: PRODUCT USED FOR UNKNOWN INDICATION
     Route: 048
     Dates: start: 20170612
  8. OTEZLA [Suspect]
     Active Substance: APREMILAST
     Indication: PSORIASIS
     Dosage: 60 MILLIGRAM
     Route: 048
     Dates: start: 20170718
  9. MINOCYCLINE [Concomitant]
     Active Substance: MINOCYCLINE\MINOCYCLINE HYDROCHLORIDE
     Indication: PRODUCT USED FOR UNKNOWN INDICATION
     Route: 048
     Dates: start: 20170612
  10. OTEZLA [Suspect]
     Active Substance: APREMILAST
     Indication: PSORIASIS
     Dosage: 30 MILLIGRAM
     Route: 048
  11. TRAVATAN Z [Concomitant]
     Active Substance: TRAVOPROST
     Indication: PRODUCT USED FOR UNKNOWN INDICATION
     Route: 065
     Dates: start: 20180307

REACTIONS (1)
  - Headache [Recovered/Resolved with Sequelae]

NARRATIVE: CASE EVENT DATE: 201707
